FAERS Safety Report 10499984 (Version 1)
Quarter: 2014Q4

REPORT INFORMATION
  Report Type: Spontaneous
  Country: US (occurrence: US)
  Receive Date: 20141006
  Receipt Date: 20141006
  Transmission Date: 20150528
  Serious: No
  Sender: FDA-Public Use
  Company Number: US-AMGEN INC.-USASP2014057740

PATIENT
  Age: 82 Year
  Sex: Female

DRUGS (5)
  1. VITAMINS WITH MINERALS [Concomitant]
     Active Substance: MINERALS\VITAMINS
  2. PROLIA [Suspect]
     Active Substance: DENOSUMAB
     Indication: OSTEOPOROSIS POSTMENOPAUSAL
     Dosage: UNK
     Route: 065
     Dates: start: 2010
  3. CALCIUM [Concomitant]
     Active Substance: CALCIUM
  4. VITAMIN D                          /00107901/ [Concomitant]
     Active Substance: ERGOCALCIFEROL
  5. VITAMIN B [Concomitant]
     Active Substance: VITAMIN B

REACTIONS (7)
  - Pain in jaw [Unknown]
  - Tooth extraction [Unknown]
  - Facial pain [Unknown]
  - Hyperaesthesia [Unknown]
  - Neuralgia [Unknown]
  - Pain in extremity [Unknown]
  - Toothache [Unknown]
